FAERS Safety Report 9647995 (Version 1)
Quarter: 2013Q4

REPORT INFORMATION
  Report Type: Spontaneous
  Country: US (occurrence: US)
  Receive Date: 20131028
  Receipt Date: 20131028
  Transmission Date: 20140711
  Serious: No
  Sender: FDA-Public Use
  Company Number: US-PFIZER INC-2013303946

PATIENT
  Age: 61 Year
  Sex: Male
  Weight: 77.1 kg

DRUGS (1)
  1. NICOTROL INHALER [Suspect]
     Indication: SMOKING CESSATION THERAPY
     Dosage: UNKNOWN DOSE 6 CARTRIDGES IN A DAY
     Dates: start: 201303

REACTIONS (2)
  - Product formulation issue [Unknown]
  - Throat irritation [Unknown]
